FAERS Safety Report 7430621-3 (Version None)
Quarter: 2011Q2

REPORT INFORMATION
  Report Type: 
  Country: None (occurrence: None)
  Receive Date: 20110421
  Receipt Date: 20110103
  Transmission Date: 20111010
  Serious: No
  Sender: FDA-Public Use
  Company Number: US-ASTRAZENECA-2011SE00511

PATIENT
  Age: 39 Year
  Sex: Female

DRUGS (1)
  1. TOPROL-XL [Suspect]
     Route: 048

REACTIONS (5)
  - ACCIDENT AT WORK [None]
  - CHEST PAIN [None]
  - FEELING ABNORMAL [None]
  - PALPITATIONS [None]
  - DRUG DOSE OMISSION [None]
